FAERS Safety Report 12832303 (Version 1)
Quarter: 2016Q4

REPORT INFORMATION
  Report Type: Other
  Country: RO (occurrence: RO)
  Receive Date: 20161010
  Receipt Date: 20161010
  Transmission Date: 20170207
  Serious: Yes (Other)
  Sender: FDA-Public Use
  Company Number: RO-LUPIN PHARMACEUTICALS INC.-2016-04514

PATIENT
  Age: 44 Year
  Sex: Female

DRUGS (1)
  1. CIPROFLOXACIN. [Suspect]
     Active Substance: CIPROFLOXACIN
     Indication: BRONCHITIS
     Route: 048

REACTIONS (6)
  - Pruritus generalised [Recovering/Resolving]
  - Urticaria [Recovering/Resolving]
  - Lip oedema [Recovering/Resolving]
  - Oedema peripheral [Recovering/Resolving]
  - Type I hypersensitivity [Recovering/Resolving]
  - Tachycardia [Recovering/Resolving]
